FAERS Safety Report 10801974 (Version 2)
Quarter: 2015Q1

REPORT INFORMATION
  Report Type: Spontaneous
  Country: US (occurrence: US)
  Receive Date: 20150217
  Receipt Date: 20150325
  Transmission Date: 20150721
  Serious: Yes (Hospitalization, Other)
  Sender: FDA-Public Use
  Company Number: US-AMGEN-USASP2015013754

PATIENT
  Age: 48 Year
  Sex: Female

DRUGS (1)
  1. ENBREL [Suspect]
     Active Substance: ETANERCEPT
     Indication: RHEUMATOID ARTHRITIS
     Dosage: 50 MG, QWK
     Route: 065
     Dates: start: 2006

REACTIONS (11)
  - Jaw fracture [Recovered/Resolved]
  - Injection site erythema [Recovered/Resolved]
  - Road traffic accident [Recovered/Resolved]
  - Heart rate increased [Recovered/Resolved]
  - Device related infection [Recovered/Resolved]
  - Lumbar vertebral fracture [Recovered/Resolved]
  - Pyrexia [Recovered/Resolved]
  - Pain [Recovered/Resolved]
  - Rheumatoid arthritis [Not Recovered/Not Resolved]
  - Incision site infection [Recovered/Resolved]
  - Injection site pruritus [Recovered/Resolved]

NARRATIVE: CASE EVENT DATE: 200612
